FAERS Safety Report 17910145 (Version 1)
Quarter: 2020Q2

REPORT INFORMATION
  Report Type: Spontaneous
  Country: US (occurrence: US)
  Receive Date: 20200617
  Receipt Date: 20200617
  Transmission Date: 20200714
  Serious: No
  Sender: FDA-Public Use
  Company Number: US-US-PROVELL PHARMACEUTICALS LLC-9168548

PATIENT
  Age: 56 Year
  Sex: Male
  Weight: 72 kg

DRUGS (4)
  1. EUTHYROX [Suspect]
     Active Substance: LEVOTHYROXINE SODIUM
     Indication: AUTOIMMUNE THYROIDITIS
     Dates: start: 202004, end: 2020
  2. EUTHYROX [Suspect]
     Active Substance: LEVOTHYROXINE SODIUM
     Dosage: RE-INTRODUCED
     Dates: start: 20200608
  3. ADVIL (MEFENAMIC ACID) [Concomitant]
     Active Substance: MEFENAMIC ACID
     Indication: PAIN
  4. EUTHYROX [Suspect]
     Active Substance: LEVOTHYROXINE SODIUM
     Dosage: DOSE REDUCED
     Dates: start: 2020, end: 20200607

REACTIONS (10)
  - Madarosis [Not Recovered/Not Resolved]
  - Flatulence [Not Recovered/Not Resolved]
  - Renal pain [Not Recovered/Not Resolved]
  - Feeding disorder [Recovering/Resolving]
  - Visual impairment [Not Recovered/Not Resolved]
  - Arthralgia [Recovering/Resolving]
  - Renal disorder [Not Recovered/Not Resolved]
  - Musculoskeletal stiffness [Recovering/Resolving]
  - Dysuria [Unknown]
  - Temporomandibular joint syndrome [Recovering/Resolving]

NARRATIVE: CASE EVENT DATE: 2020
